FAERS Safety Report 9395033 (Version 2)
Quarter: 2013Q3

REPORT INFORMATION
  Report Type: Spontaneous
  Country: US (occurrence: US)
  Receive Date: 20130711
  Receipt Date: 20130712
  Transmission Date: 20140515
  Serious: Yes (Other)
  Sender: FDA-Public Use
  Company Number: US-BAYER-2013-081326

PATIENT
  Age: 48 Year
  Sex: Female
  Weight: 59 kg

DRUGS (6)
  1. MIDOL EXTENDED RELIEF CAPLET [Suspect]
     Dosage: 1 DF, PRN
     Route: 048
     Dates: start: 201306, end: 201306
  2. DOCUSATE [Concomitant]
  3. OXYCONTIN [Concomitant]
  4. VITAMIN D [Concomitant]
  5. ELAVIL [Concomitant]
  6. PHENERGAN [Concomitant]

REACTIONS (2)
  - Renal failure acute [None]
  - Pre-existing condition improved [Recovered/Resolved]
